FAERS Safety Report 6137086-2 (Version None)
Quarter: 2009Q1

REPORT INFORMATION
  Report Type: 
  Country: None (occurrence: None)
  Receive Date: 20090330
  Receipt Date: 20090323
  Transmission Date: 20090719
  Serious: Yes (Death, Other)
  Sender: FDA-Public Use
  Company Number: US-ROCHE-623568

PATIENT
  Age: 52 Year
  Sex: Female

DRUGS (5)
  1. GANCICLOVIR [Suspect]
     Indication: CYTOMEGALOVIRUS INFECTION
     Route: 065
  2. SIROLIMUS [Suspect]
     Indication: IMMUNOSUPPRESSION
     Route: 065
  3. TACROLIMUS [Suspect]
     Indication: IMMUNOSUPPRESSION
     Dosage: TAPERED OFF
     Route: 065
  4. METRONIDAZOLE [Suspect]
     Indication: DRUG USE FOR UNKNOWN INDICATION
     Route: 065
  5. AMOXICILLIN [Suspect]
     Route: 065

REACTIONS (6)
  - AZOTAEMIA [None]
  - COMPLICATIONS OF TRANSPLANT SURGERY [None]
  - CYTOMEGALOVIRUS COLITIS [None]
  - DEATH [None]
  - INFLAMMATORY BOWEL DISEASE [None]
  - WEIGHT DECREASED [None]
